FAERS Safety Report 5616046-1 (Version None)
Quarter: 2008Q1

REPORT INFORMATION
  Report Type: 
  Country: None (occurrence: None)
  Receive Date: 20080206
  Receipt Date: 20080128
  Transmission Date: 20080703
  Serious: Yes (Other)
  Sender: FDA-Public Use
  Company Number: IN-PURDUE-USA_2008_0031298

PATIENT
  Age: 65 Year
  Sex: Male

DRUGS (6)
  1. THEOPHYLLINE [Suspect]
     Indication: ASTHMA
     Dosage: 400 MG, DAILY
     Route: 048
  2. TIOTROPIUM [Concomitant]
     Dosage: UNK, BID
     Route: 055
  3. FORMOTEROL FUMARATE [Concomitant]
     Dosage: UNK, BID
     Route: 055
  4. RAMIPRIL [Concomitant]
     Dosage: 2.5 MG, DAILY
     Route: 048
  5. HYDROCHLOROTHIAZIDE [Concomitant]
     Dosage: 12.5 MG, DAILY
     Route: 048
  6. NEBIVOLOL HCL [Concomitant]
     Dosage: 2.5 MG, DAILY
     Route: 048

REACTIONS (6)
  - BLOOD PRESSURE INCREASED [None]
  - ELECTROCARDIOGRAM T WAVE AMPLITUDE DECREASED [None]
  - EXTRASYSTOLES [None]
  - HEART RATE INCREASED [None]
  - SCAN MYOCARDIAL PERFUSION ABNORMAL [None]
  - WHEEZING [None]
